FAERS Safety Report 25981202 (Version 2)
Quarter: 2025Q4

REPORT INFORMATION
  Report Type: Report from Study
  Country: EU (occurrence: EU)
  Receive Date: 20251030
  Receipt Date: 20251104
  Transmission Date: 20260118
  Serious: Yes (Hospitalization, Other)
  Sender: JOHNSON AND JOHNSON
  Company Number: EU-JNJFOC-20250924166

PATIENT
  Age: 50 Year
  Sex: Female
  Weight: 90 kg

DRUGS (1)
  1. STELARA [Suspect]
     Active Substance: USTEKINUMAB
     Indication: Crohn^s disease
     Route: 058

REACTIONS (14)
  - Crohn^s disease [Not Recovered/Not Resolved]
  - Intestinal prolapse [Unknown]
  - Anaphylactic shock [Unknown]
  - Vomiting [Unknown]
  - Asthenia [Unknown]
  - Blood glucose abnormal [Not Recovered/Not Resolved]
  - Dysgeusia [Unknown]
  - Somnolence [Unknown]
  - Dysphonia [Unknown]
  - Hernia [Unknown]
  - Lethargy [Unknown]
  - Fear [Unknown]
  - Therapeutic response decreased [Unknown]
  - Off label use [Unknown]

NARRATIVE: CASE EVENT DATE: 20170101
